FAERS Safety Report 5210565-8 (Version None)
Quarter: 2006Q4

REPORT INFORMATION
  Report Type: 
  Country: None (occurrence: None)
  Receive Date: 20061106
  Receipt Date: 20060411
  Transmission Date: 20070319
  Serious: Yes (Other)
  Sender: FDA-Public Use
  Company Number: US-JNJFOC-20060403670

PATIENT
  Age: 13 Year
  Sex: Female
  Weight: 56.6996 kg

DRUGS (4)
  1. MOTRIN [Suspect]
     Indication: RADICULAR PAIN
     Dates: end: 20060201
  2. ZYRTEC [Concomitant]
  3. TYLENOL (CAPLET) [Concomitant]
  4. VICODIN [Concomitant]

REACTIONS (1)
  - GASTRIC ULCER HAEMORRHAGE [None]
